FAERS Safety Report 5104724-2 (Version None)
Quarter: 2006Q3

REPORT INFORMATION
  Report Type: 
  Country: None (occurrence: None)
  Receive Date: 20060911
  Receipt Date: 20060911
  Transmission Date: 20061208
  Serious: Yes (Other)
  Sender: FDA-Public Use
  Company Number: None

PATIENT
  Age: 29 Year
  Sex: Female
  Weight: 90.7194 kg

DRUGS (2)
  1. SPRYCEL [Suspect]
     Indication: ACUTE MYELOID LEUKAEMIA
     Dosage: 70 MG   BID   PO
     Route: 048
     Dates: start: 20060721, end: 20060817
  2. SPRYCEL [Suspect]
     Indication: GENE MUTATION
     Dosage: 70 MG   BID   PO
     Route: 048
     Dates: start: 20060721, end: 20060817

REACTIONS (5)
  - CARDIOMEGALY [None]
  - CONGESTIVE CARDIOMYOPATHY [None]
  - EJECTION FRACTION DECREASED [None]
  - PERICARDIAL EFFUSION [None]
  - VENTRICULAR HYPOKINESIA [None]
